FAERS Safety Report 7230860-0 (Version None)
Quarter: 2011Q1

REPORT INFORMATION
  Report Type: 
  Country: None (occurrence: None)
  Receive Date: 20110107
  Receipt Date: 20101224
  Transmission Date: 20110831
  Serious: Yes (Other)
  Sender: FDA-Public Use
  Company Number: 2010005634

PATIENT
  Age: 72 Year
  Sex: Female
  Weight: 41.5 kg

DRUGS (11)
  1. HALCION [Concomitant]
  2. CYTOTEC [Concomitant]
  3. AVASTIN [Suspect]
     Indication: LUNG ADENOCARCINOMA METASTATIC
     Dosage: (15 MG/KG, 1 X PER 3 WEEKS), INTRAVENOUS DRIP
     Route: 041
     Dates: start: 20100429
  4. METHYCOBAL (MECOBALAMIN) [Concomitant]
  5. AMLODIPINE BESYLATE [Concomitant]
  6. TARCEVA [Suspect]
     Indication: LUNG ADENOCARCINOMA METASTATIC
     Dosage: (150 MG, 1 X PER DAY), ORAL
     Route: 048
     Dates: start: 20080519, end: 20100506
  7. OXYCONTIN [Concomitant]
  8. MOBIC [Concomitant]
  9. ALIMTA [Suspect]
     Indication: LUNG ADENOCARCINOMA METASTATIC
     Dosage: (500 MG/M2, 1 X PER 1 DAY), INTRAVENOUS DRIP
     Route: 041
     Dates: start: 20100429
  10. HEAVY MAGNESIUM OXIDE (MAGNESIUM OXIDE HEAVY) [Concomitant]
  11. KYTRIL [Concomitant]

REACTIONS (2)
  - LEUKOPENIA [None]
  - HYPOAESTHESIA [None]
